FAERS Safety Report 9576634 (Version 1)
Quarter: 2013Q4

REPORT INFORMATION
  Report Type: Spontaneous
  Country: US (occurrence: US)
  Receive Date: 20131001
  Receipt Date: 20131001
  Transmission Date: 20140711
  Serious: No
  Sender: FDA-Public Use
  Company Number: US-AMGEN-USASP2013003588

PATIENT
  Age: 27 Year
  Sex: Male
  Weight: 138.32 kg

DRUGS (2)
  1. ENBREL [Suspect]
     Indication: PSORIASIS
     Dosage: 50 MG, 2 TIMES/WK EVERY 72 HOURS AS DIRECTED
     Route: 058
  2. PROVENTIL                          /00139501/ [Concomitant]
     Dosage: AER 90 MUG, UNK

REACTIONS (2)
  - Injection site erythema [Unknown]
  - Injection site warmth [Unknown]
